FAERS Safety Report 4658819-8 (Version None)
Quarter: 2005Q2

REPORT INFORMATION
  Report Type: 
  Country: None (occurrence: None)
  Receive Date: 20050511
  Receipt Date: 20050429
  Transmission Date: 20051028
  Serious: Yes (Other)
  Sender: FDA-Public Use
  Company Number: US-GLAXOSMITHKLINE-A0556391A

PATIENT
  Age: 69 Year
  Sex: Female
  Weight: 47 kg

DRUGS (5)
  1. TARGET NTS 21MG [Suspect]
     Indication: SMOKING CESSATION THERAPY
     Dosage: 21MG PER DAY
     Route: 062
     Dates: start: 20031201, end: 20031201
  2. VITAMIN E [Concomitant]
  3. ASPIRIN [Concomitant]
  4. ESTER C [Concomitant]
  5. SUPER B COMPLEX [Concomitant]

REACTIONS (4)
  - ABNORMAL DREAMS [None]
  - HALLUCINATION [None]
  - INSOMNIA [None]
  - RESTLESSNESS [None]
